FAERS Safety Report 13835932 (Version 2)
Quarter: 2017Q3

REPORT INFORMATION
  Report Type: Spontaneous
  Country: US (occurrence: US)
  Receive Date: 20170804
  Receipt Date: 20170824
  Transmission Date: 20171127
  Serious: Yes (Hospitalization)
  Sender: FDA-Public Use
  Company Number: US-VERTEX PHARMACEUTICALS-2017-004080

PATIENT
  Age: 13 Year
  Sex: Female

DRUGS (15)
  1. CITRACAL PLUS [Concomitant]
     Active Substance: CALCIUM\MAGNESIUM\VITAMIN D\ZINC
  2. HUMULIN R [Concomitant]
     Active Substance: INSULIN HUMAN
  3. ORKAMBI [Suspect]
     Active Substance: IVACAFTOR\LUMACAFTOR
     Indication: CYSTIC FIBROSIS
     Dosage: 2 DF (200/125MG EACH), BID
     Route: 048
     Dates: start: 20160223
  4. PULMOZYME [Concomitant]
     Active Substance: DORNASE ALFA
     Route: 055
  5. ZITHROMAX [Concomitant]
     Active Substance: AZITHROMYCIN DIHYDRATE
  6. NEXIUM [Concomitant]
     Active Substance: ESOMEPRAZOLE MAGNESIUM
  7. INFLUENZA VACCINE [Concomitant]
     Active Substance: INFLUENZA VIRUS VACCINE
     Dosage: UNK
     Dates: start: 20161121
  8. GLUCAGON. [Concomitant]
     Active Substance: GLUCAGON
  9. PROVENTIL [Concomitant]
     Active Substance: ALBUTEROL
     Route: 055
  10. MIRALAX [Concomitant]
     Active Substance: POLYETHYLENE GLYCOL 3350
  11. CREON [Concomitant]
     Active Substance: PANCRELIPASE AMYLASE\PANCRELIPASE LIPASE\PANCRELIPASE PROTEASE
  12. HYPERSAL [Concomitant]
     Route: 055
  13. CAYSTON [Concomitant]
     Active Substance: AZTREONAM
     Route: 055
  14. COLYMYCIN [Concomitant]
     Route: 055
  15. COMPLETE MULTI VIT [Concomitant]

REACTIONS (1)
  - Infective pulmonary exacerbation of cystic fibrosis [Recovering/Resolving]

NARRATIVE: CASE EVENT DATE: 20170725
